FAERS Safety Report 15428299 (Version 4)
Quarter: 2020Q2

REPORT INFORMATION
  Report Type: Report from Study
  Country: US (occurrence: US)
  Receive Date: 20180926
  Receipt Date: 20200604
  Transmission Date: 20200713
  Serious: Yes (Other)
  Sender: FDA-Public Use
  Company Number: US-ROCHE-2187250

PATIENT
  Sex: Female

DRUGS (3)
  1. OCREVUS [Suspect]
     Active Substance: OCRELIZUMAB
     Indication: RELAPSING-REMITTING MULTIPLE SCLEROSIS
     Dosage: ONGOING : YES, FIRST AND SECOND INFUSION
     Route: 042
     Dates: start: 20171025
  2. OCREVUS [Suspect]
     Active Substance: OCRELIZUMAB
     Dosage: ONGOING : YES, THIRD INFUSION?DATE OF TREATMENT: 15/JAN/2018, 29/JAN/2018, 07/SEP/2018, 07/MAY/2019,
     Route: 042
  3. LAMOTRIGINE. [Concomitant]
     Active Substance: LAMOTRIGINE
     Route: 048

REACTIONS (3)
  - Dizziness [Unknown]
  - Visual impairment [Unknown]
  - Glaucoma [Unknown]
